FAERS Safety Report 9879248 (Version 2)
Quarter: 2014Q1

REPORT INFORMATION
  Report Type: Spontaneous
  Country: US (occurrence: US)
  Receive Date: 20140206
  Receipt Date: 20140206
  Transmission Date: 20141002
  Serious: No
  Sender: FDA-Public Use
  Company Number: US-ALLERGAN-1314038US

PATIENT
  Age: 65 Year
  Sex: Male

DRUGS (5)
  1. BOTOX [Suspect]
     Indication: MIGRAINE
     Dosage: 400 UNITS, SINGLE
     Route: 030
     Dates: start: 20130829, end: 20130829
  2. BOTOX [Suspect]
     Indication: HEADACHE
     Dosage: 200 UNITS, SINGLE
     Route: 030
     Dates: start: 2012, end: 2012
  3. THYROID MEDICINE [Concomitant]
     Indication: THYROID DISORDER
     Dosage: UNK
     Route: 048
  4. CHOLESTEROL MEDICINE [Concomitant]
     Indication: BLOOD CHOLESTEROL INCREASED
     Dosage: UNK
     Route: 048
  5. EXCEDRIN                           /00110301/ [Concomitant]
     Indication: MIGRAINE
     Dosage: UNK UNK, PRN
     Route: 048

REACTIONS (10)
  - Insomnia [Not Recovered/Not Resolved]
  - Pain [Not Recovered/Not Resolved]
  - Off label use [Unknown]
  - Muscle tightness [Not Recovered/Not Resolved]
  - Muscular weakness [Not Recovered/Not Resolved]
  - Muscular weakness [Not Recovered/Not Resolved]
  - Neck pain [Not Recovered/Not Resolved]
  - Injection site pain [Not Recovered/Not Resolved]
  - Therapeutic response decreased [Unknown]
  - Off label use [Unknown]
